FAERS Safety Report 7248431-9 (Version None)
Quarter: 2011Q1

REPORT INFORMATION
  Report Type: 
  Country: None (occurrence: None)
  Receive Date: 20110127
  Receipt Date: 20110113
  Transmission Date: 20110831
  Serious: Yes (Hospitalization)
  Sender: FDA-Public Use
  Company Number: US-BAXTER-2010BH031085

PATIENT
  Sex: Female

DRUGS (2)
  1. DIANEAL [Suspect]
     Indication: RENAL FAILURE CHRONIC
     Route: 033
     Dates: start: 20101101, end: 20101215
  2. DIANEAL [Suspect]
     Route: 033
     Dates: start: 20101216

REACTIONS (2)
  - SKIN ULCER [None]
  - FLUID RETENTION [None]
